FAERS Safety Report 6808416-0 (Version None)
Quarter: 2010Q2

REPORT INFORMATION
  Report Type: 
  Country: None (occurrence: None)
  Receive Date: 20100629
  Receipt Date: 20090624
  Transmission Date: 20101027
  Serious: No
  Sender: FDA-Public Use
  Company Number: US-PFIZER INC-2009205187

PATIENT
  Sex: Female
  Weight: 79 kg

DRUGS (3)
  1. REVATIO [Suspect]
     Indication: PULMONARY ARTERIAL HYPERTENSION
     Dosage: 20 MG, 3X/DAY
     Dates: start: 20080301
  2. PRAVASTATIN [Concomitant]
     Indication: BLOOD CHOLESTEROL INCREASED
     Dosage: UNK
  3. WARFARIN SODIUM [Concomitant]
     Dosage: UNK

REACTIONS (2)
  - EYE DISORDER [None]
  - EYE IRRITATION [None]
